FAERS Safety Report 7130330-4 (Version None)
Quarter: 2010Q4

REPORT INFORMATION
  Report Type: 
  Country: None (occurrence: None)
  Receive Date: 20101116
  Receipt Date: 20101108
  Transmission Date: 20110411
  Serious: Yes (Other)
  Sender: FDA-Public Use
  Company Number: 2010SP052009

PATIENT
  Age: 36 Year
  Sex: Female

DRUGS (3)
  1. NUVARING [Suspect]
     Indication: CONTRACEPTION
     Dosage: ; VAG
     Route: 067
     Dates: start: 20100801, end: 20100801
  2. COMBINED HORMONAL CONTRACEPTION (CONTRACEPTIVES NOS) [Suspect]
     Indication: PRODUCT USED FOR UNKNOWN INDICATION
  3. ANTIDEPRESSANT [Concomitant]

REACTIONS (3)
  - ABASIA [None]
  - ACUTE VESTIBULAR SYNDROME [None]
  - ARTHROPOD BITE [None]
